FAERS Safety Report 14713358 (Version 1)
Quarter: 2018Q1

REPORT INFORMATION
  Report Type: Spontaneous
  Country: US (occurrence: US)
  Receive Date: 20180330
  Receipt Date: 20180330
  Transmission Date: 20180509
  Serious: Yes (Hospitalization)
  Sender: FDA-Public Use
  Company Number: None

PATIENT
  Age: 70 Year
  Sex: Male
  Weight: 116.17 kg

DRUGS (1)
  1. CHLORPHENIRAMINE. [Suspect]
     Active Substance: CHLORPHENIRAMINE
     Indication: UPPER RESPIRATORY TRACT INFECTION
     Route: 048
     Dates: start: 20180310, end: 20180324

REACTIONS (5)
  - Nystagmus [None]
  - Dizziness [None]
  - Orthostatic hypotension [None]
  - Ataxia [None]
  - Fall [None]

NARRATIVE: CASE EVENT DATE: 20180324
